FAERS Safety Report 5069483-0 (Version None)
Quarter: 2006Q3

REPORT INFORMATION
  Report Type: 
  Country: None (occurrence: None)
  Receive Date: 20060714
  Receipt Date: 20060321
  Transmission Date: 20061208
  Serious: No
  Sender: FDA-Public Use
  Company Number: 2006SP001338

PATIENT
  Sex: Female

DRUGS (2)
  1. LUNESTA [Suspect]
     Dosage: SEE IMAGE
     Route: 048
     Dates: start: 20060201, end: 20060201
  2. LUNESTA [Suspect]
     Dosage: SEE IMAGE
     Route: 048
     Dates: start: 20060320, end: 20060320

REACTIONS (1)
  - DYSGEUSIA [None]
